FAERS Safety Report 9224765 (Version 1)
Quarter: 2013Q1

REPORT INFORMATION
  Report Type: Spontaneous
  Country: US (occurrence: None)
  Receive Date: 20120919
  Receipt Date: 20120919
  Transmission Date: 20140127
  Serious: Yes (Other)
  Sender: FDA-Public Use
  Company Number: 2012P1054852

PATIENT
  Age: 15 Year
  Sex: Female

DRUGS (1)
  1. PROPLYTHIOURACIL [Suspect]
     Indication: BASEDOW^S DISEASE
     Route: 048
     Dates: start: 200708

REACTIONS (2)
  - Hepatic failure [None]
  - Liver transplant [None]
